FAERS Safety Report 8554629-X (Version None)
Quarter: 2012Q3

REPORT INFORMATION
  Report Type: 
  Country: None (occurrence: None)
  Receive Date: 20120731
  Receipt Date: 20120731
  Transmission Date: 20120928
  Serious: Yes (Other)
  Sender: FDA-Public Use
  Company Number: US-ROCHE-1091979

PATIENT
  Age: 57 Year
  Sex: Female
  Weight: 104.42 kg

DRUGS (1)
  1. XELODA [Suspect]
     Indication: COLORECTAL CANCER METASTATIC
     Route: 048
     Dates: start: 20120102, end: 20120718

REACTIONS (3)
  - FATIGUE [None]
  - NEOPLASM MALIGNANT [None]
  - PARAESTHESIA [None]
